FAERS Safety Report 6530974-4 (Version None)
Quarter: 2010Q1

REPORT INFORMATION
  Report Type: 
  Country: None (occurrence: None)
  Receive Date: 20100108
  Receipt Date: 20090731
  Transmission Date: 20100710
  Serious: No
  Sender: FDA-Public Use
  Company Number: A0799891A

PATIENT
  Age: 57 Year
  Sex: Male

DRUGS (8)
  1. LOVAZA [Suspect]
     Dosage: 4CAP PER DAY
     Route: 048
     Dates: start: 20090601
  2. ABILIFY [Concomitant]
  3. CYMBALTA [Concomitant]
  4. BLOOD PRESSURE MEDICATION [Concomitant]
  5. MULTI-VITAMIN [Concomitant]
  6. VITAMIN C [Concomitant]
  7. VITAMIN E [Concomitant]
  8. MIRAPEX [Concomitant]

REACTIONS (2)
  - SKIN ODOUR ABNORMAL [None]
  - SWEAT GLAND DISORDER [None]
